FAERS Safety Report 8108122-9 (Version None)
Quarter: 2012Q1

REPORT INFORMATION
  Report Type: 
  Country: None (occurrence: None)
  Receive Date: 20120202
  Receipt Date: 20120125
  Transmission Date: 20120608
  Serious: Yes (Hospitalization, Other)
  Sender: FDA-Public Use
  Company Number: US-ABBOTT-11P-163-0727746-00

PATIENT
  Sex: Female

DRUGS (4)
  1. HUMIRA [Suspect]
     Dates: start: 20111201
  2. ASACOL [Concomitant]
     Indication: CROHN'S DISEASE
  3. HUMIRA [Suspect]
     Indication: CROHN'S DISEASE
     Dates: start: 20100901
  4. MULTI-VITAMINS [Concomitant]
     Indication: VITAMIN SUPPLEMENTATION

REACTIONS (4)
  - CEPHALO-PELVIC DISPROPORTION [None]
  - SWELLING [None]
  - PROTEIN URINE PRESENT [None]
  - HYPERTENSION [None]
